FAERS Safety Report 23279435 (Version 1)
Quarter: 2023Q4

REPORT INFORMATION
  Report Type: Spontaneous
  Country: EG (occurrence: EG)
  Receive Date: 20231208
  Receipt Date: 20231208
  Transmission Date: 20240110
  Serious: Yes (Hospitalization, Other)
  Sender: FDA-Public Use
  Company Number: None

PATIENT
  Age: 59 Year
  Sex: Female
  Weight: 100 kg

DRUGS (5)
  1. ENOXAPARIN SODIUM [Suspect]
     Active Substance: ENOXAPARIN SODIUM
     Indication: Prophylaxis
     Dosage: 40 MG, QD
     Route: 058
     Dates: start: 20231027, end: 20231101
  2. ASMATROPIM [Concomitant]
     Indication: Asthma
     Dosage: 1 DF, Q8H
     Route: 055
     Dates: start: 20231027, end: 20231105
  3. PULMICORT TURBUHALER [Concomitant]
     Active Substance: BUDESONIDE
     Indication: Asthma
     Dosage: 0.25 MG, Q12H
     Route: 055
     Dates: start: 20231027, end: 20231105
  4. XORAXON [Concomitant]
     Indication: Asthma
     Dosage: 2 G, QD
     Dates: start: 20231027, end: 20231031
  5. ARIXTRA [Concomitant]
     Active Substance: FONDAPARINUX SODIUM
     Dosage: UNK

REACTIONS (3)
  - Viral infection [Recovered/Resolved]
  - Pulmonary oedema [Recovered/Resolved]
  - Heparin-induced thrombocytopenia [Recovered/Resolved]

NARRATIVE: CASE EVENT DATE: 20231101
